FAERS Safety Report 7462380-2 (Version None)
Quarter: 2011Q2

REPORT INFORMATION
  Report Type: 
  Country: None (occurrence: None)
  Receive Date: 20110506
  Receipt Date: 20100708
  Transmission Date: 20111010
  Serious: No
  Sender: FDA-Public Use
  Company Number: US-BAYER-201029204NA

PATIENT
  Sex: Female

DRUGS (1)
  1. YAZ [Suspect]
     Indication: CONTRACEPTION
     Dosage: UNK
     Dates: start: 20090601, end: 20100701

REACTIONS (6)
  - METRORRHAGIA [None]
  - BACK PAIN [None]
  - ABDOMINAL PAIN [None]
  - PAIN IN EXTREMITY [None]
  - MIGRAINE [None]
  - DENTAL CARIES [None]
